FAERS Safety Report 15844120 (Version 5)
Quarter: 2019Q3

REPORT INFORMATION
  Report Type: Spontaneous
  Country: US (occurrence: US)
  Receive Date: 20190118
  Receipt Date: 20190829
  Transmission Date: 20191004
  Serious: Yes (Other)
  Sender: FDA-Public Use
  Company Number: US-PFIZER INC-2019023437

PATIENT
  Age: 55 Year
  Sex: Female
  Weight: 66 kg

DRUGS (2)
  1. IMITREX [Concomitant]
     Active Substance: SUMATRIPTAN SUCCINATE
     Indication: MIGRAINE
     Dosage: UNK, AS NEEDED
  2. LYRICA [Suspect]
     Active Substance: PREGABALIN
     Indication: FIBROMYALGIA
     Dosage: 200 MG, 3X/DAY (200 MG BY MOUTH THREE TIMES A DAY)
     Route: 048

REACTIONS (11)
  - Renal failure [Unknown]
  - Thinking abnormal [Unknown]
  - Off label use [Unknown]
  - Limb injury [Not Recovered/Not Resolved]
  - Drug dependence [Unknown]
  - Sensory loss [Unknown]
  - Fall [Unknown]
  - Injury [Not Recovered/Not Resolved]
  - Vitamin D decreased [Unknown]
  - Intentional product use issue [Unknown]
  - Foot fracture [Unknown]

NARRATIVE: CASE EVENT DATE: 20190113
